FAERS Safety Report 10695762 (Version 1)
Quarter: 2015Q1

REPORT INFORMATION
  Report Type: Spontaneous
  Country: TW (occurrence: None)
  Receive Date: 20150105
  Receipt Date: 20150105
  Transmission Date: 20150721
  Serious: Yes (Life-Threatening, Hospitalization, Other)
  Sender: FDA-Public Use
  Company Number: 2014JUB00229

PATIENT
  Age: 47 Year
  Sex: Female

DRUGS (5)
  1. MIDAZOLAM [Suspect]
     Active Substance: MIDAZOLAM\MIDAZOLAM HYDROCHLORIDE
  2. FLURAZEPAM (FLURAZEPAM) [Suspect]
     Active Substance: FLURAZEPAM HYDROCHLORIDE
  3. TRIHEXYPHENIDYL (TRIHEXYPHENIDYL) [Suspect]
     Active Substance: TRIHEXYPHENIDYL
  4. CLONAZEPAM (CLONAZEPAM) [Suspect]
     Active Substance: CLONAZEPAM
  5. RISPERIODNE (RISPERIODNE) UNKNOWN [Suspect]
     Active Substance: RISPERIDONE

REACTIONS (5)
  - Suicide attempt [None]
  - Rhabdomyolysis [None]
  - Myoclonus [None]
  - Drug interaction [None]
  - Intentional overdose [None]
